FAERS Safety Report 7018050-8 (Version None)
Quarter: 2010Q3

REPORT INFORMATION
  Report Type: 
  Country: None (occurrence: None)
  Receive Date: 20100928
  Receipt Date: 20100920
  Transmission Date: 20110219
  Serious: Yes (Hospitalization, Other)
  Sender: FDA-Public Use
  Company Number: PHHY2010FI55516

PATIENT
  Sex: Male

DRUGS (5)
  1. LEPONEX [Suspect]
     Dosage: 50 MG/ DAY
     Dates: start: 20100802
  2. LEPONEX [Suspect]
     Dosage: 50 MG/ DAY
     Dates: start: 20100804
  3. LEPONEX [Suspect]
     Dosage: 75 MG/ DAY
     Dates: start: 20100806
  4. LEPONEX [Suspect]
     Dosage: 150 MG/ DAY
     Dates: start: 20100808
  5. LEPONEX [Suspect]
     Dosage: 400 MG/ DAY

REACTIONS (6)
  - AUTOIMMUNE DISORDER [None]
  - C-REACTIVE PROTEIN INCREASED [None]
  - INFECTION [None]
  - LEUKOCYTOSIS [None]
  - PNEUMONIA [None]
  - PYREXIA [None]
